FAERS Safety Report 16393115 (Version 1)
Quarter: 2019Q2

REPORT INFORMATION
  Report Type: Spontaneous
  Country: CA (occurrence: CA)
  Receive Date: 20190605
  Receipt Date: 20190605
  Transmission Date: 20190711
  Serious: Yes (Other)
  Sender: FDA-Public Use
  Company Number: CA-GILEAD-2019-0411582

PATIENT
  Age: 44 Year
  Sex: Female

DRUGS (7)
  1. IMODIUM [Suspect]
     Active Substance: LOPERAMIDE HYDROCHLORIDE
     Indication: PRODUCT USED FOR UNKNOWN INDICATION
     Route: 065
  2. CETIRIZINE [Concomitant]
     Active Substance: CETIRIZINE HYDROCHLORIDE
  3. FLUCONAZOLE. [Concomitant]
     Active Substance: FLUCONAZOLE
  4. HARVONI [Suspect]
     Active Substance: LEDIPASVIR\SOFOSBUVIR
     Indication: PRODUCT USED FOR UNKNOWN INDICATION
     Route: 065
  5. LORAZEPAM. [Concomitant]
     Active Substance: LORAZEPAM
  6. GABAPENTIN. [Concomitant]
     Active Substance: GABAPENTIN
  7. QUETIAPINE. [Concomitant]
     Active Substance: QUETIAPINE

REACTIONS (3)
  - Kidney infection [Not Recovered/Not Resolved]
  - Pain [Not Recovered/Not Resolved]
  - Diarrhoea [Not Recovered/Not Resolved]
